FAERS Safety Report 10103595 (Version 1)
Quarter: 2014Q2

REPORT INFORMATION
  Report Type: Spontaneous
  Country: IT (occurrence: IT)
  Receive Date: 20140424
  Receipt Date: 20140424
  Transmission Date: 20141212
  Serious: Yes (Other)
  Sender: FDA-Public Use
  Company Number: IT-ACTAVIS-2014-08050

PATIENT
  Age: 58 Year
  Sex: Male
  Weight: 80 kg

DRUGS (6)
  1. IRINOTECAN (UNKNOWN) [Suspect]
     Indication: COLON CANCER
     Dosage: 340 MG, CYCLICAL
     Route: 042
     Dates: start: 20130423, end: 20131028
  2. FLUOROURACIL (UNKNOWN) [Suspect]
     Indication: COLON CANCER
     Dosage: 780 MG, CYCLICAL
     Route: 042
     Dates: start: 20130423, end: 20131028
  3. FLUOROURACIL (UNKNOWN) [Suspect]
     Dosage: 4700 MG, CYCLICAL
     Route: 041
     Dates: start: 20130423, end: 20131028
  4. AVASTIN                            /00848101/ [Suspect]
     Indication: COLON CANCER
     Dosage: 400 MG, CYCLICAL
     Route: 042
     Dates: start: 20130423, end: 20131028
  5. PLASIL                             /00041901/ [Concomitant]
     Indication: PRODUCT USED FOR UNKNOWN INDICATION
     Dosage: UNK
     Route: 065
  6. LEVOFOLINIC ACID [Concomitant]
     Indication: PRODUCT USED FOR UNKNOWN INDICATION
     Dosage: 390 MG, UNK
     Route: 065
     Dates: start: 20130423, end: 20131028

REACTIONS (1)
  - Neutropenia [Recovering/Resolving]
